FAERS Safety Report 18434497 (Version 1)
Quarter: 2020Q4

REPORT INFORMATION
  Report Type: Spontaneous
  Country: US (occurrence: US)
  Receive Date: 20201028
  Receipt Date: 20201028
  Transmission Date: 20210114
  Serious: No
  Sender: FDA-Public Use
  Company Number: US-VERICEL-US-VCEL-20-003057

PATIENT
  Age: 44 Year
  Sex: Male

DRUGS (1)
  1. MACI [Suspect]
     Active Substance: AUTOLOGOUS CULTURED CHONDROCYTES\SUS SCROFA COLLAGEN
     Indication: CARTILAGE INJURY
     Dosage: 21 MEMBRANE 2

REACTIONS (1)
  - Product complaint [Recovering/Resolving]

NARRATIVE: CASE EVENT DATE: 20201007
